APPROVED DRUG PRODUCT: CHILDREN'S ADVIL COLD
Active Ingredient: IBUPROFEN; PSEUDOEPHEDRINE HYDROCHLORIDE
Strength: 100MG/5ML;15MG/5ML
Dosage Form/Route: SUSPENSION;ORAL
Application: N021373 | Product #001
Applicant: HALEON US HOLDINGS LLC
Approved: Apr 18, 2002 | RLD: No | RS: No | Type: OTC